FAERS Safety Report 6167443-X (Version None)
Quarter: 2009Q2

REPORT INFORMATION
  Report Type: 
  Country: None (occurrence: None)
  Receive Date: 20090424
  Receipt Date: 20090422
  Transmission Date: 20091009
  Serious: Yes (Death, Hospitalization, Other)
  Sender: FDA-Public Use
  Company Number: PHHY2009IT15202

PATIENT
  Age: 28 Year
  Sex: Male

DRUGS (6)
  1. CYCLOSPORINE [Suspect]
     Indication: ALLOGENIC BONE MARROW TRANSPLANTATION THERAPY
     Dosage: UNK
  2. METHOTREXATE [Concomitant]
     Indication: PROPHYLAXIS AGAINST GRAFT VERSUS HOST DISEASE
  3. CYCLOPHOSPHAMIDE [Concomitant]
     Dosage: 120 MG/KG
  4. MELPHALAN [Concomitant]
     Dosage: 90 MG/KG
  5. ANTI-THYMOCYTE GLOBULIN NOS [Concomitant]
     Dosage: 20 MG/KG
  6. IRRADIATION [Concomitant]

REACTIONS (14)
  - CEREBRAL FUNGAL INFECTION [None]
  - CHRONIC GRAFT VERSUS HOST DISEASE [None]
  - CHRONIC MYELOID LEUKAEMIA [None]
  - DEBRIDEMENT [None]
  - EYE SWELLING [None]
  - EYELID OEDEMA [None]
  - HEADACHE [None]
  - LUNG DISORDER [None]
  - MUCORMYCOSIS [None]
  - NASAL CONGESTION [None]
  - NEUTROPENIA [None]
  - PYREXIA [None]
  - SINUS HEADACHE [None]
  - SINUSITIS FUNGAL [None]
